FAERS Safety Report 15453087 (Version 2)
Quarter: 2018Q4

REPORT INFORMATION
  Report Type: Spontaneous
  Country: JP (occurrence: JP)
  Receive Date: 20181001
  Receipt Date: 20181017
  Transmission Date: 20190204
  Serious: Yes (Death, Hospitalization, Other)
  Sender: FDA-Public Use
  Company Number: JP-SA-2018SA265556

PATIENT
  Age: 70 Year
  Sex: Male

DRUGS (2)
  1. 5-FLUOROURACIL [FLUOROURACIL] [Suspect]
     Active Substance: FLUOROURACIL
     Indication: OESOPHAGEAL CANCER METASTATIC
     Dosage: UNK UNK, UNK
     Route: 065
  2. DOCETAXEL. [Suspect]
     Active Substance: DOCETAXEL
     Indication: OESOPHAGEAL CANCER METASTATIC
     Dosage: UNK UNK, UNK
     Route: 065

REACTIONS (15)
  - Pericardial fibrosis [Unknown]
  - Blood pressure systolic inspiratory decreased [Unknown]
  - Pericarditis [Unknown]
  - Myocardial fibrosis [Unknown]
  - Pericardial effusion [Unknown]
  - Renal impairment [Unknown]
  - Hypoxia [Unknown]
  - Pleural effusion [Unknown]
  - Cardiac discomfort [Unknown]
  - Pleurisy [Unknown]
  - Dyspnoea exertional [Unknown]
  - Oedema peripheral [Unknown]
  - Cardiomegaly [Unknown]
  - Cardiac failure [Fatal]
  - Left ventricular dysfunction [Unknown]
